FAERS Safety Report 9848798 (Version 2)
Quarter: 2014Q2

REPORT INFORMATION
  Report Type: Spontaneous
  Country: DE (occurrence: DE)
  Receive Date: 20140128
  Receipt Date: 20140415
  Transmission Date: 20141212
  Serious: Yes (Other)
  Sender: FDA-Public Use
  Company Number: DE-JNJFOC-20140113328

PATIENT
  Age: 79 Year
  Sex: Male
  Weight: 74.83 kg

DRUGS (7)
  1. XARELTO [Suspect]
     Indication: CEREBROVASCULAR ACCIDENT PROPHYLAXIS
     Route: 048
     Dates: start: 201306, end: 201311
  2. XARELTO [Suspect]
     Indication: ATRIAL FIBRILLATION
     Route: 048
     Dates: start: 201306, end: 201311
  3. METOPROLOL [Concomitant]
     Route: 065
  4. PANTAZOL [Concomitant]
     Route: 065
  5. HCT [Concomitant]
     Route: 065
  6. TOREM [Concomitant]
     Route: 065
  7. TAMSULOSIN [Concomitant]
     Route: 065

REACTIONS (1)
  - Renal failure [Recovering/Resolving]
